FAERS Safety Report 6231744-7 (Version None)
Quarter: 2009Q2

REPORT INFORMATION
  Report Type: 
  Country: None (occurrence: None)
  Receive Date: 20090616
  Receipt Date: 20090608
  Transmission Date: 20091009
  Serious: Yes (Other)
  Sender: FDA-Public Use
  Company Number: GB-NOVOPROD-288038

PATIENT
  Sex: Female

DRUGS (2)
  1. ACTRAPID [Suspect]
     Indication: TYPE 1 DIABETES MELLITUS
     Route: 064
  2. INSULATARD [Suspect]
     Indication: TYPE 1 DIABETES MELLITUS
     Route: 064

REACTIONS (2)
  - DRUG EXPOSURE DURING PREGNANCY [None]
  - PREMATURE BABY [None]
